FAERS Safety Report 19151731 (Version 1)
Quarter: 2021Q2

REPORT INFORMATION
  Report Type: Spontaneous
  Country: PT (occurrence: PT)
  Receive Date: 20210419
  Receipt Date: 20210419
  Transmission Date: 20210717
  Serious: Yes (Other)
  Sender: FDA-Public Use
  Company Number: PT-LUPIN PHARMACEUTICALS INC.-2021-04842

PATIENT
  Age: 76 Year
  Sex: Female

DRUGS (1)
  1. FLUOCINOLONE [Suspect]
     Active Substance: FLUOCINOLONE
     Indication: CYSTOID MACULAR OEDEMA
     Dosage: 0.2 MICROGRAM, QD (IN BOTH EYES; INTRAVITREAL INJECTION)?IMPLANT

REACTIONS (2)
  - Intraocular pressure increased [Recovering/Resolving]
  - Off label use [Unknown]
